FAERS Safety Report 4397085-8 (Version None)
Quarter: 2004Q3

REPORT INFORMATION
  Report Type: 
  Country: None (occurrence: None)
  Receive Date: 20040708
  Receipt Date: 20040705
  Transmission Date: 20050211
  Serious: Yes (Other)
  Sender: FDA-Public Use
  Company Number: 200412140GDS

PATIENT
  Age: 53 Year
  Sex: Male

DRUGS (8)
  1. CIPROFLOXACIN [Suspect]
     Indication: OSTEITIS
     Dosage: 500 MG, BID, ORAL
     Route: 048
     Dates: start: 20031227
  2. LOGASTRIC [Concomitant]
  3. AMARYLE [Concomitant]
  4. GLUCOPHAGE [Concomitant]
  5. ISOTEN [Concomitant]
  6. LIPITOR [Concomitant]
  7. CAPTOPRIL [Concomitant]
  8. MAXSOTEN [Concomitant]

REACTIONS (1)
  - ALOPECIA [None]
